FAERS Safety Report 24523818 (Version 1)
Quarter: 2024Q4

REPORT INFORMATION
  Report Type: Spontaneous
  Country: US (occurrence: US)
  Receive Date: 20241018
  Receipt Date: 20241018
  Transmission Date: 20250115
  Serious: Yes (Other)
  Sender: BAUSCH AND LOMB
  Company Number: US-BAUSCHBL-2024BNL035827

PATIENT
  Age: 80 Year
  Sex: Female

DRUGS (3)
  1. ADVANCED EYE RELIEF DRY EYE REJUVENATION [Suspect]
     Active Substance: GLYCERIN\PROPYLENE GLYCOL
     Indication: Dry eye
     Dosage: AS NEEDED
     Route: 065
  2. GLYCERIN\PROPYLENE GLYCOL [Suspect]
     Active Substance: GLYCERIN\PROPYLENE GLYCOL
     Indication: Dry eye
     Route: 065
  3. REFRESH CLASSIC [Suspect]
     Active Substance: POLYVINYL ALCOHOL\POVIDONE
     Indication: Dry eye
     Dosage: 1 DROP INTO EACH EYE ONCE
     Route: 065

REACTIONS (5)
  - Cataract [Unknown]
  - Liquid product physical issue [Unknown]
  - Product use complaint [Unknown]
  - Extra dose administered [Unknown]
  - Product use issue [Unknown]
